FAERS Safety Report 8307091-6 (Version None)
Quarter: 2012Q2

REPORT INFORMATION
  Report Type: 
  Country: None (occurrence: None)
  Receive Date: 20120424
  Receipt Date: 20120420
  Transmission Date: 20120825
  Serious: Yes (Other)
  Sender: FDA-Public Use
  Company Number: JP-PFIZER INC-2012097867

PATIENT
  Sex: Female

DRUGS (1)
  1. ALDACTONE [Suspect]
     Dosage: 75 MG, DAILY
     Route: 048

REACTIONS (3)
  - NEPHROPATHY TOXIC [None]
  - ASCITES [None]
  - HYPERKALAEMIA [None]
